FAERS Safety Report 4381203-1 (Version None)
Quarter: 2004Q2

REPORT INFORMATION
  Report Type: 
  Country: None (occurrence: None)
  Receive Date: 20040616
  Receipt Date: 20040608
  Transmission Date: 20050107
  Serious: Yes (Hospitalization)
  Sender: FDA-Public Use
  Company Number: US-JNJFOC-20040602583

PATIENT
  Age: 49 Year
  Sex: Female

DRUGS (3)
  1. TYLENOL [Suspect]
     Dosage: (^A LOT IN A LITITLE AMOUNT OF TIME^)
     Dates: start: 20040524, end: 20040524
  2. MUSCLE RELAXER ( ) MUSCLE RELAXANTS [Concomitant]
  3. VICODIN [Concomitant]

REACTIONS (5)
  - COMA [None]
  - GENERALISED OEDEMA [None]
  - ISCHAEMIC HEPATITIS [None]
  - OVERDOSE [None]
  - RENAL FAILURE [None]
